FAERS Safety Report 9429160 (Version 2)
Quarter: 2013Q3

REPORT INFORMATION
  Report Type: Spontaneous
  Country: US (occurrence: US)
  Receive Date: 20130730
  Receipt Date: 20130807
  Transmission Date: 20140515
  Serious: No
  Sender: FDA-Public Use
  Company Number: US-ROXANE LABORATORIES, INC.-2013-RO-01234RO

PATIENT
  Age: 34 Year
  Sex: Female

DRUGS (1)
  1. BALSALAZIDE [Suspect]
     Indication: COLITIS ULCERATIVE
     Route: 048
     Dates: start: 20130722, end: 20130723

REACTIONS (2)
  - Headache [Not Recovered/Not Resolved]
  - Abdominal discomfort [Recovered/Resolved]
